FAERS Safety Report 5873261-X (Version None)
Quarter: 2008Q3

REPORT INFORMATION
  Report Type: 
  Country: None (occurrence: None)
  Receive Date: 20080905
  Receipt Date: 20080905
  Transmission Date: 20090109
  Serious: Yes (Other)
  Sender: FDA-Public Use
  Company Number: None

PATIENT
  Age: 57 Year
  Sex: Male
  Weight: 115.9394 kg

DRUGS (3)
  1. RISPERIDONE [Suspect]
     Indication: DELUSION
  2. RISPERIDONE [Suspect]
     Indication: PSYCHOTIC DISORDER
  3. RISPERIDONE [Suspect]

REACTIONS (5)
  - ANXIETY [None]
  - DISTURBANCE IN ATTENTION [None]
  - DYSPNOEA [None]
  - INSOMNIA [None]
  - THINKING ABNORMAL [None]
